FAERS Safety Report 8057415-2 (Version None)
Quarter: 2012Q1

REPORT INFORMATION
  Report Type: 
  Country: None (occurrence: None)
  Receive Date: 20120119
  Receipt Date: 20120116
  Transmission Date: 20120608
  Serious: Yes (Life-Threatening)
  Sender: FDA-Public Use
  Company Number: ZA-ASTRAZENECA-2011SE72079

PATIENT
  Sex: Female
  Weight: 58 kg

DRUGS (3)
  1. HYALASE [Concomitant]
     Dates: start: 20111111, end: 20111111
  2. NAROPIN [Suspect]
     Indication: NERVE BLOCK
     Route: 053
     Dates: start: 20111111, end: 20111111
  3. MIDAZOLAM HCL [Concomitant]
     Dates: start: 20111111, end: 20111111

REACTIONS (2)
  - BLOOD PRESSURE ABNORMAL [None]
  - ANAPHYLACTIC SHOCK [None]
